FAERS Safety Report 17842578 (Version 1)
Quarter: 2020Q2

REPORT INFORMATION
  Report Type: Spontaneous
  Country: BR (occurrence: BR)
  Receive Date: 20200529
  Receipt Date: 20200529
  Transmission Date: 20200714
  Serious: Yes (Hospitalization, Other)
  Sender: FDA-Public Use
  Company Number: NVSC2020BR148987

PATIENT
  Sex: Female

DRUGS (3)
  1. CARBAMAZEPINE. [Suspect]
     Active Substance: CARBAMAZEPINE
     Indication: PRODUCT USED FOR UNKNOWN INDICATION
     Dosage: STARTED FOR MORE THAN 14 YEARS
     Route: 065
  2. IBUPROFEN. [Suspect]
     Active Substance: IBUPROFEN
     Indication: PRODUCT USED FOR UNKNOWN INDICATION
     Dosage: STARTED FOR MORE THAN 14 YEARS
     Route: 065
  3. AMITRIPTYLINE [Concomitant]
     Active Substance: AMITRIPTYLINE
     Indication: PRODUCT USED FOR UNKNOWN INDICATION
     Dosage: STARTED FOR MORE THAN 14 YEARS
     Route: 065

REACTIONS (4)
  - Loss of consciousness [Unknown]
  - Memory impairment [Not Recovered/Not Resolved]
  - Migraine [Recovered/Resolved]
  - Seizure [Unknown]

NARRATIVE: CASE EVENT DATE: 2006
